FAERS Safety Report 25599518 (Version 2)
Quarter: 2025Q4

REPORT INFORMATION
  Report Type: Report from Study
  Country: US (occurrence: US)
  Receive Date: 20250724
  Receipt Date: 20251218
  Transmission Date: 20260118
  Serious: Yes (Hospitalization)
  Sender: TRAVERE THERAPEUTICS
  Company Number: US-TRAVERE-2025TVT01180

PATIENT
  Age: 75 Year
  Sex: Female
  Weight: 119.75 kg

DRUGS (18)
  1. FILSPARI [Suspect]
     Active Substance: SPARSENTAN
     Indication: Product used for unknown indication
     Route: 048
     Dates: start: 202505, end: 20250709
  2. FILSPARI [Suspect]
     Active Substance: SPARSENTAN
     Route: 048
     Dates: start: 20250710
  3. TORSEMIDE [Concomitant]
     Active Substance: TORSEMIDE
  4. Potassium CHL [Concomitant]
  5. METOPROLOL TARTRATE [Concomitant]
     Active Substance: METOPROLOL TARTRATE
  6. DOFETILIDE [Concomitant]
     Active Substance: DOFETILIDE
  7. FOLIC ACID [Concomitant]
     Active Substance: FOLIC ACID
  8. ROPINIROLE HYDROCHLORIDE [Concomitant]
     Active Substance: ROPINIROLE HYDROCHLORIDE
  9. VENLAFAXINE [Concomitant]
     Active Substance: VENLAFAXINE HYDROCHLORIDE
  10. ASPIRIN [Concomitant]
     Active Substance: ASPIRIN
  11. VITAMIN B12 [Concomitant]
     Active Substance: CYANOCOBALAMIN
  12. VITAMIN D [Concomitant]
     Active Substance: VITAMIN D NOS
  13. MAGNESIUM GLYCINATE [Concomitant]
     Active Substance: MAGNESIUM GLYCINATE
  14. IRON [Concomitant]
     Active Substance: IRON
  15. Hair Skin and Nails [Concomitant]
  16. NOVOLIN NOS [Concomitant]
     Active Substance: INSULIN HUMAN
  17. XANAX [Concomitant]
     Active Substance: ALPRAZOLAM
  18. UNSPECIFIED INGREDIENT [Concomitant]
     Active Substance: UNSPECIFIED INGREDIENT
     Dates: start: 20250711

REACTIONS (2)
  - Pneumonia aspiration [Recovering/Resolving]
  - Fluid retention [Unknown]

NARRATIVE: CASE EVENT DATE: 20250709
